FAERS Safety Report 10521950 (Version 1)
Quarter: 2014Q4

REPORT INFORMATION
  Report Type: Spontaneous
  Country: CN (occurrence: CN)
  Receive Date: 20141016
  Receipt Date: 20141016
  Transmission Date: 20150528
  Serious: Yes (Other)
  Sender: FDA-Public Use
  Company Number: ALCN2014CN005647

PATIENT
  Age: 49 Year
  Sex: Female

DRUGS (2)
  1. PRANOPROFEN [Suspect]
     Active Substance: PRANOPROFEN
     Dosage: 1 DF, UNK
     Route: 047
  2. TOBRADEX [Suspect]
     Active Substance: DEXAMETHASONE\TOBRAMYCIN
     Dosage: 1 DF, UNK
     Route: 047

REACTIONS (4)
  - Conjunctival ulcer [Unknown]
  - Fungal infection [Unknown]
  - Necrotising scleritis [Unknown]
  - Bacterial infection [Unknown]
